FAERS Safety Report 7099526-4 (Version None)
Quarter: 2010Q4

REPORT INFORMATION
  Report Type: 
  Country: None (occurrence: None)
  Receive Date: 20101112
  Receipt Date: 20081027
  Transmission Date: 20110411
  Serious: No
  Sender: FDA-Public Use
  Company Number: US-KINGPHARMUSA00001-K200801241

PATIENT
  Sex: Female

DRUGS (4)
  1. LEVOXYL [Suspect]
     Indication: HYPOTHYROIDISM
     Dosage: 100 MCG, QD
     Route: 048
  2. EVENING PRIMROSE OIL               /01332402/ [Concomitant]
  3. FISH OIL [Concomitant]
  4. VITAMINS                           /90003601/ [Concomitant]
     Dosage: UNK, UNK

REACTIONS (1)
  - ALOPECIA [None]
